FAERS Safety Report 8848905 (Version 3)
Quarter: 2013Q1

REPORT INFORMATION
  Report Type: Spontaneous
  Country: US (occurrence: None)
  Receive Date: 20121015
  Receipt Date: 20121121
  Transmission Date: 20140127
  Serious: Yes (Other)
  Sender: FDA-Public Use
  Company Number: 2012SGN00450

PATIENT
  Age: 31 Year
  Sex: Male

DRUGS (2)
  1. ADCETRIS [Suspect]
     Indication: HODGKIN^S DISEASE
     Route: 042
     Dates: end: 20120827
  2. ADCETRIS [Suspect]
     Indication: NEOPLASM RECURRENCE
     Route: 042
     Dates: end: 20120827

REACTIONS (4)
  - Pneumonia [None]
  - Nocardiosis [None]
  - Bronchopulmonary aspergillosis [None]
  - Lung abscess [None]
